FAERS Safety Report 8551553-3 (Version None)
Quarter: 2012Q3

REPORT INFORMATION
  Report Type: 
  Country: None (occurrence: None)
  Receive Date: 20120730
  Receipt Date: 20120725
  Transmission Date: 20120928
  Serious: Yes (Death)
  Sender: FDA-Public Use
  Company Number: GB-ROCHE-1092992

PATIENT
  Sex: Female
  Weight: 55 kg

DRUGS (3)
  1. METHOTREXATE [Concomitant]
  2. MABTHERA [Suspect]
     Indication: RHEUMATOID ARTHRITIS
     Dates: start: 20090708
  3. LEFLUNOMIDE [Concomitant]

REACTIONS (1)
  - DEATH [None]
